FAERS Safety Report 11506909 (Version 1)
Quarter: 2015Q3

REPORT INFORMATION
  Report Type: Other
  Country: FR (occurrence: FR)
  Receive Date: 20150915
  Receipt Date: 20150915
  Transmission Date: 20151125
  Serious: Yes (Other)
  Sender: FDA-Public Use
  Company Number: FR-ASTELLAS-2015US032117

PATIENT
  Age: 1 Month
  Sex: Female
  Weight: 2 kg

DRUGS (7)
  1. GAVISCON                           /01405501/ [Concomitant]
     Active Substance: SODIUM ALGINATE\SODIUM BICARBONATE
     Indication: PRODUCT USED FOR UNKNOWN INDICATION
     Dosage: 0.6 ML, SEVEN TIMES DAILY
     Route: 048
     Dates: start: 20150131
  2. PROGRAF [Suspect]
     Active Substance: TACROLIMUS\TACROLIMUS ANHYDROUS
     Dosage: UNK, UNKNOWN FREQ.
     Route: 064
  3. VITAMIN K [Concomitant]
     Active Substance: PHYTONADIONE
     Indication: PRODUCT USED FOR UNKNOWN INDICATION
     Dosage: 2 MG, ONCE WEEKLY (0.2857 ONCE DAILY)
     Route: 048
  4. UVESTEROL VITAMINE A D E C [Concomitant]
     Indication: PRODUCT USED FOR UNKNOWN INDICATION
     Dosage: 0.3 ML, ONCE DAILY
     Route: 048
  5. IMUREL                             /00001501/ [Suspect]
     Active Substance: AZATHIOPRINE SODIUM
     Indication: PRODUCT USED FOR UNKNOWN INDICATION
     Route: 063
     Dates: start: 20150121
  6. PROGRAF [Suspect]
     Active Substance: TACROLIMUS\TACROLIMUS ANHYDROUS
     Indication: PRODUCT USED FOR UNKNOWN INDICATION
     Route: 063
     Dates: start: 20150121
  7. INEXIUM                            /01479302/ [Concomitant]
     Active Substance: ESOMEPRAZOLE MAGNESIUM
     Indication: PRODUCT USED FOR UNKNOWN INDICATION
     Route: 048
     Dates: start: 20150131

REACTIONS (8)
  - Diarrhoea [Unknown]
  - Neutropenia [Recovered/Resolved]
  - Pyrexia [Unknown]
  - Premature baby [Unknown]
  - Exposure during breast feeding [Unknown]
  - Nasopharyngitis [Unknown]
  - Neonatal respiratory distress syndrome [Unknown]
  - Ear infection [Unknown]

NARRATIVE: CASE EVENT DATE: 20150223
